FAERS Safety Report 6402682-1 (Version None)
Quarter: 2009Q4

REPORT INFORMATION
  Report Type: 
  Country: None (occurrence: None)
  Receive Date: 20091015
  Receipt Date: 20091008
  Transmission Date: 20100525
  Serious: Yes (Hospitalization)
  Sender: FDA-Public Use
  Company Number: ES-AMGEN-UK324296

PATIENT
  Sex: Male

DRUGS (3)
  1. PANITUMUMAB [Suspect]
     Indication: SQUAMOUS CELL CARCINOMA
     Route: 042
     Dates: start: 20081112, end: 20081204
  2. RADIATION THERAPY [Suspect]
     Route: 065
     Dates: end: 20081231
  3. CISPLATIN [Suspect]
     Route: 065
     Dates: end: 20081204

REACTIONS (3)
  - ASPIRATION [None]
  - PNEUMONITIS [None]
  - PYREXIA [None]
